FAERS Safety Report 6337242-4 (Version None)
Quarter: 2009Q3

REPORT INFORMATION
  Report Type: 
  Country: None (occurrence: None)
  Receive Date: 20090902
  Receipt Date: 20090826
  Transmission Date: 20100115
  Serious: Yes (Life-Threatening, Hospitalization, Other)
  Sender: FDA-Public Use
  Company Number: US-BIOGENIDEC-2009BI024187

PATIENT
  Age: 42 Year
  Sex: Female

DRUGS (8)
  1. TYSABRI [Suspect]
     Indication: MULTIPLE SCLEROSIS
     Route: 042
     Dates: start: 20090421
  2. AMANTADINE HCL [Concomitant]
     Route: 048
     Dates: start: 20000101
  3. LYRICA [Concomitant]
     Route: 048
     Dates: start: 20060101
  4. RITALIN [Concomitant]
     Route: 048
     Dates: start: 20090601
  5. MIRAPEX [Concomitant]
     Route: 048
     Dates: start: 20070101
  6. NITROFURANTOIN [Concomitant]
     Route: 048
     Dates: start: 20080101
  7. YAZ [Concomitant]
     Route: 048
     Dates: start: 20080101
  8. PROZAC [Concomitant]
     Route: 048

REACTIONS (2)
  - MALIGNANT MELANOMA IN SITU [None]
  - PULMONARY EMBOLISM [None]
